FAERS Safety Report 8486276-2 (Version None)
Quarter: 2012Q3

REPORT INFORMATION
  Report Type: 
  Country: None (occurrence: None)
  Receive Date: 20120703
  Receipt Date: 20120622
  Transmission Date: 20120928
  Serious: Yes (Congenital Anomaly, Other)
  Sender: FDA-Public Use
  Company Number: DE-TEVA-345005GER

PATIENT
  Age: 0 Year
  Sex: Female

DRUGS (3)
  1. LITHIUM CARBONATE [Suspect]
     Route: 064
  2. SEROQUEL [Suspect]
     Route: 064
  3. VENLAFAXINE [Suspect]
     Route: 064

REACTIONS (3)
  - RESPIRATORY FAILURE [None]
  - ATRIAL SEPTAL DEFECT [None]
  - AGITATION NEONATAL [None]
